FAERS Safety Report 6369103-9 (Version None)
Quarter: 2009Q3

REPORT INFORMATION
  Report Type: 
  Country: None (occurrence: None)
  Receive Date: 20090922
  Receipt Date: 20090918
  Transmission Date: 20100115
  Serious: Yes (Death)
  Sender: FDA-Public Use
  Company Number: PHHY2009GB34581

PATIENT
  Sex: Male

DRUGS (3)
  1. STALEVO 100 [Suspect]
     Indication: PARKINSON'S DISEASE
     Dosage: 200 MG TABLET 5 TIMES PER DAY
     Route: 048
     Dates: start: 20090101
  2. STALEVO 100 [Suspect]
     Dosage: 150 MG TABLETS 5 TIMES A DAY
     Route: 048
     Dates: start: 20090801
  3. SINEMET CR [Concomitant]
     Dosage: 50/200 MG AT NIGHT AND 25/100 MG AT DAY
     Dates: start: 20080201

REACTIONS (4)
  - DEATH [None]
  - IMPULSE-CONTROL DISORDER [None]
  - SEXUAL DYSFUNCTION [None]
  - SUDDEN DEATH [None]
